FAERS Safety Report 25182749 (Version 1)
Quarter: 2025Q2

REPORT INFORMATION
  Report Type: Spontaneous
  Country: US (occurrence: US)
  Receive Date: 20250410
  Receipt Date: 20250410
  Transmission Date: 20250717
  Serious: Yes (Other)
  Sender: BRISTOL MYERS SQUIBB
  Company Number: US-BRISTOL-MYERS SQUIBB COMPANY-2025-052628

PATIENT
  Age: 31 Year
  Sex: Female

DRUGS (3)
  1. NIVOLUMAB [Suspect]
     Active Substance: NIVOLUMAB
     Indication: Hodgkin^s disease
     Dates: start: 20190510, end: 20200320
  2. NIVOLUMAB [Suspect]
     Active Substance: NIVOLUMAB
     Dates: end: 20201116
  3. BRENTUXIMAB VEDOTIN [Suspect]
     Active Substance: BRENTUXIMAB VEDOTIN
     Indication: Hodgkin^s disease
     Dates: start: 20190510, end: 20200320

REACTIONS (16)
  - Tenosynovitis [Unknown]
  - Eosinophilia [Unknown]
  - Malignant neoplasm progression [Unknown]
  - Productive cough [Unknown]
  - Night sweats [Unknown]
  - Constipation [Unknown]
  - Dermatitis acneiform [Unknown]
  - Headache [Unknown]
  - Photopsia [Unknown]
  - Vision blurred [Unknown]
  - Photophobia [Unknown]
  - Arthralgia [Unknown]
  - Neuropathy peripheral [Unknown]
  - Pruritus [Unknown]
  - Vomiting projectile [Unknown]
  - Nausea [Unknown]

NARRATIVE: CASE EVENT DATE: 20190523
